FAERS Safety Report 12517460 (Version 3)
Quarter: 2020Q3

REPORT INFORMATION
  Report Type: Spontaneous
  Country: ES (occurrence: ES)
  Receive Date: 20160630
  Receipt Date: 20190308
  Transmission Date: 20201104
  Serious: Yes (Hospitalization)
  Sender: FDA-Public Use
  Company Number: ES-ROCHE-1785348

PATIENT
  Age: 51 Year
  Sex: Female

DRUGS (2)
  1. IBANDRONIC ACID. [Suspect]
     Active Substance: IBANDRONIC ACID
     Indication: SPINAL FRACTURE
     Route: 065
  2. PREDNISONE. [Suspect]
     Active Substance: PREDNISONE
     Indication: PRODUCT USED FOR UNKNOWN INDICATION
     Dosage: INTERMITTENT PREDNISONE VARYING BETWEEN 1 AND 2.5 MG/KG/DAY
     Route: 048

REACTIONS (1)
  - Iridocyclitis [Recovering/Resolving]
